FAERS Safety Report 4368121-X (Version None)
Quarter: 2004Q2

REPORT INFORMATION
  Report Type: 
  Country: None (occurrence: None)
  Receive Date: 20040602
  Receipt Date: 20040511
  Transmission Date: 20050107
  Serious: Yes (Life-Threatening, Hospitalization, Disabling, Other)
  Sender: FDA-Public Use
  Company Number: US-MERCK-0405USA00662

PATIENT
  Age: 79 Year
  Sex: Male
  Weight: 91 kg

DRUGS (6)
  1. FOSAMAX [Suspect]
     Indication: OSTEOPENIA
     Route: 048
     Dates: start: 20040401, end: 20040501
  2. WELLBUTRIN [Concomitant]
     Route: 065
  3. GLUCOTROL [Concomitant]
     Indication: DIABETES MELLITUS
     Route: 065
  4. ZOLOFT [Concomitant]
     Route: 065
  5. ZOCOR [Concomitant]
     Route: 048
  6. COUMADIN [Concomitant]
     Indication: ATRIAL FIBRILLATION
     Route: 065

REACTIONS (4)
  - ABNORMAL BEHAVIOUR [None]
  - CARDIAC FAILURE CONGESTIVE [None]
  - PANCREATITIS ACUTE [None]
  - PNEUMONIA [None]
